FAERS Safety Report 9835217 (Version 2)
Quarter: 2014Q1

REPORT INFORMATION
  Report Type: Spontaneous
  Country: US (occurrence: US)
  Receive Date: 20140122
  Receipt Date: 20140122
  Transmission Date: 20141002
  Serious: Yes (Hospitalization)
  Sender: FDA-Public Use
  Company Number: US-BRISTOL-MYERS SQUIBB COMPANY-19865278

PATIENT
  Sex: Male

DRUGS (10)
  1. ELIQUIS [Suspect]
     Dates: start: 20131120, end: 20131124
  2. AMIODARONE [Concomitant]
     Dosage: 04OCT2013
     Dates: start: 20131003
  3. CARVEDILOL [Concomitant]
     Dates: start: 20130617
  4. CRESTOR [Concomitant]
  5. ALLOPURINOL [Concomitant]
  6. LATANOPROST [Concomitant]
     Dosage: 1 DF : 0.005%?EYE DROPS
  7. TIMOLOL MALEATE [Concomitant]
     Dosage: 1 DF : 0.50%?EYE DROPS
  8. AZELASTINE [Concomitant]
     Dosage: 1 DF : 0.15%?NASAL SPRAY
  9. PREDNISONE [Concomitant]
  10. LOSARTAN [Concomitant]

REACTIONS (1)
  - Extradural haematoma [Not Recovered/Not Resolved]
